FAERS Safety Report 12358399 (Version 1)
Quarter: 2016Q2

REPORT INFORMATION
  Report Type: Spontaneous
  Country: US (occurrence: US)
  Receive Date: 20160512
  Receipt Date: 20160512
  Transmission Date: 20160815
  Serious: No
  Sender: FDA-Public Use
  Company Number: US-PFIZER INC-2016226262

PATIENT
  Age: 64 Year
  Sex: Female

DRUGS (6)
  1. KEFZOL [Suspect]
     Active Substance: CEFAZOLIN SODIUM
     Dosage: UNK
  2. LIPITOR [Suspect]
     Active Substance: ATORVASTATIN CALCIUM
     Dosage: UNK
  3. CODEINE [Suspect]
     Active Substance: CODEINE
     Dosage: UNK
  4. PITAVASTATIN [Suspect]
     Active Substance: PITAVASTATIN
     Dosage: UNK
  5. CALCIUM [Suspect]
     Active Substance: CALCIUM
     Dosage: UNK
  6. CORTISONE [Suspect]
     Active Substance: CORTISONE\HYDROCORTISONE
     Dosage: UNK

REACTIONS (1)
  - Drug hypersensitivity [Unknown]
